FAERS Safety Report 4504364-X (Version None)
Quarter: 2004Q4

REPORT INFORMATION
  Report Type: 
  Country: None (occurrence: None)
  Receive Date: 20041117
  Receipt Date: 20041117
  Transmission Date: 20050328
  Serious: No
  Sender: FDA-Public Use
  Company Number: None

PATIENT
  Age: 71 Year
  Sex: Male
  Weight: 99.7913 kg

DRUGS (4)
  1. ALBUTEROL [Suspect]
     Indication: ASTHMA
     Dosage: ONE VIAL PER NEBULIZER TWICE A DAY
     Route: 055
     Dates: start: 20040901
  2. ALBUTEROL [Suspect]
     Indication: CHRONIC OBSTRUCTIVE AIRWAYS DISEASE
     Dosage: ONE VIAL PER NEBULIZER TWICE A DAY
     Route: 055
     Dates: start: 20040901
  3. TRIAMCINOLONE [Suspect]
     Indication: ASTHMA
     Dosage: ONE VIAL PER NEBULIZER
     Route: 055
     Dates: start: 20041001
  4. TRIAMCINOLONE [Suspect]
     Indication: CHRONIC OBSTRUCTIVE AIRWAYS DISEASE
     Dosage: ONE VIAL PER NEBULIZER
     Route: 055
     Dates: start: 20041001

REACTIONS (3)
  - BURNING SENSATION [None]
  - LUNG DISORDER [None]
  - PHARMACEUTICAL PRODUCT COUNTERFEIT [None]
